FAERS Safety Report 8275867-X (Version None)
Quarter: 2012Q2

REPORT INFORMATION
  Report Type: 
  Country: None (occurrence: None)
  Receive Date: 20120410
  Receipt Date: 20120410
  Transmission Date: 20120825
  Serious: Yes (Other)
  Sender: FDA-Public Use
  Company Number: None

PATIENT
  Sex: Female

DRUGS (1)
  1. XOLAIR [Suspect]
     Dosage: 150MG QMONTH SQ
     Route: 058
     Dates: start: 20110401, end: 20120328

REACTIONS (4)
  - CHEST DISCOMFORT [None]
  - PRURITUS [None]
  - OEDEMA [None]
  - LIP SWELLING [None]
